FAERS Safety Report 7618060-3 (Version None)
Quarter: 2011Q3

REPORT INFORMATION
  Report Type: 
  Country: None (occurrence: None)
  Receive Date: 20110718
  Receipt Date: 20110715
  Transmission Date: 20111222
  Serious: Yes (Other)
  Sender: FDA-Public Use
  Company Number: SG-PFIZER INC-2011161135

PATIENT
  Age: 46 Year
  Sex: Female

DRUGS (1)
  1. LIDOCAINE [Suspect]
     Route: 058

REACTIONS (1)
  - SYNCOPE [None]
